FAERS Safety Report 9516173 (Version 1)
Quarter: 2013Q1

REPORT INFORMATION
  Report Type: Spontaneous
  Country: US (occurrence: None)
  Receive Date: 20130305
  Receipt Date: 20130305
  Transmission Date: 20140127
  Serious: Yes (Other)
  Sender: FDA-Public Use
  Company Number: 163-21880-12080908

PATIENT
  Age: 53 Year
  Sex: Male
  Weight: 77.11 kg

DRUGS (5)
  1. REVLIMID [Suspect]
     Indication: PLASMA CELL MYELOMA
     Dosage: 15 MG, 21 IN 28 D, PO
     Route: 048
     Dates: start: 20111101
  2. ACYCLOVIR (ACICLOVIR) (ACICLOVIR) [Concomitant]
  3. CALTRATE (CALCIUM CARBONATE) [Concomitant]
  4. LIPITOR (ATORVASTATIN) [Concomitant]
  5. LYRICA (PREGABALIN) [Concomitant]

REACTIONS (2)
  - Hypoaesthesia [None]
  - Paraesthesia [None]
